FAERS Safety Report 11280924 (Version 1)
Quarter: 2015Q3

REPORT INFORMATION
  Report Type: Spontaneous
  Country: US (occurrence: US)
  Receive Date: 20150717
  Receipt Date: 20150717
  Transmission Date: 20151125
  Serious: No
  Sender: FDA-Public Use
  Company Number: US-JNJFOC-20150514275

PATIENT
  Age: 73 Year
  Sex: Male
  Weight: 51.71 kg

DRUGS (1)
  1. XARELTO [Suspect]
     Active Substance: RIVAROXABAN
     Indication: EMBOLISM VENOUS
     Route: 048
     Dates: start: 2014

REACTIONS (2)
  - Breast tenderness [Not Recovered/Not Resolved]
  - Biopsy prostate [Unknown]

NARRATIVE: CASE EVENT DATE: 2015
